FAERS Safety Report 6866884-2 (Version None)
Quarter: 2010Q3

REPORT INFORMATION
  Report Type: 
  Country: None (occurrence: None)
  Receive Date: 20100721
  Receipt Date: 20100721
  Transmission Date: 20110219
  Serious: Yes (Disabling, Other)
  Sender: FDA-Public Use
  Company Number: None

PATIENT
  Age: 38 Year
  Sex: Male
  Weight: 95.2554 kg

DRUGS (2)
  1. OXYCODONE, 5 MG. IMMEDIATE RELEASE, HCI, QUALITEST. [Suspect]
     Indication: PAIN
     Dosage: 1 OR 2 PILLS EVERY 6 HOURS ORAL
     Route: 048
     Dates: start: 20081001, end: 20081101
  2. OXYCODONE, 5 MG. IMMEDIATE RELEASE, HCI, QUALITEST. [Suspect]
     Indication: PAIN
     Dosage: 1 OR 2 PILLS EVERY 6 HOURS ORAL
     Route: 048
     Dates: start: 20100701

REACTIONS (5)
  - ABDOMINAL PAIN UPPER [None]
  - DIARRHOEA [None]
  - HAEMATOCHEZIA [None]
  - MUCOUS STOOLS [None]
  - OROPHARYNGEAL PAIN [None]
